FAERS Safety Report 22313294 (Version 1)
Quarter: 2023Q2

REPORT INFORMATION
  Report Type: Report from Study
  Country: US (occurrence: US)
  Receive Date: 20230512
  Receipt Date: 20230512
  Transmission Date: 20230722
  Serious: No
  Sender: FDA-Public Use
  Company Number: US-002147023-NVSC2023US106504

PATIENT
  Sex: Male

DRUGS (3)
  1. DOCETAXEL [Suspect]
     Active Substance: DOCETAXEL
     Indication: Pancreatic carcinoma metastatic
     Dosage: UNK (EVERY WEEK FOR FIRST 2 WEEKS OF 3-WEEK CYCLE)
     Route: 065
     Dates: start: 202210, end: 202212
  2. GEMCITABINE [Suspect]
     Active Substance: GEMCITABINE
     Indication: Pancreatic carcinoma metastatic
     Dosage: UNK (EVERY WEEK FOR FIRST 2 WEEKS OF 3-WEEK CYCLE)
     Route: 065
     Dates: start: 202210, end: 202212
  3. CAPECITABINE [Suspect]
     Active Substance: CAPECITABINE
     Indication: Pancreatic carcinoma metastatic
     Dosage: UNK UNK, BID
     Route: 065
     Dates: start: 202210, end: 202212

REACTIONS (1)
  - Drug intolerance [Unknown]
